FAERS Safety Report 4916982-5 (Version None)
Quarter: 2006Q1

REPORT INFORMATION
  Report Type: 
  Country: None (occurrence: None)
  Receive Date: 20060221
  Receipt Date: 20051215
  Transmission Date: 20060701
  Serious: Yes (Hospitalization, Disabling, Other)
  Sender: FDA-Public Use
  Company Number: CA-NOVOPROD-249536

PATIENT
  Age: 61 Year
  Sex: Male
  Weight: 132 kg

DRUGS (9)
  1. LEVEMIR [Suspect]
     Indication: INSULIN-REQUIRING TYPE II DIABETES MELLITUS
     Dosage: 9 IU, QD
     Dates: start: 20051126
  2. LEVEMIR [Suspect]
     Dosage: 7 IU, QD
     Dates: end: 20060209
  3. HUMULIN R [Concomitant]
     Dosage: 14 IU, QD
     Dates: start: 20050622
  4. HUMULIN N [Concomitant]
     Dosage: 9 IU, QD
     Dates: start: 20050622, end: 20051126
  5. METFORMIN HCL [Concomitant]
  6. GLYBURIDE [Concomitant]
  7. DIGOXIN [Concomitant]
  8. WARFARIN [Concomitant]
  9. ALDACTONE [Concomitant]

REACTIONS (9)
  - ATRIAL FIBRILLATION [None]
  - BUNDLE BRANCH BLOCK LEFT [None]
  - CARDIAC FAILURE CONGESTIVE [None]
  - CONDITION AGGRAVATED [None]
  - EJECTION FRACTION DECREASED [None]
  - HYPERTENSION [None]
  - INTERNATIONAL NORMALISED RATIO INCREASED [None]
  - ISCHAEMIC CARDIOMYOPATHY [None]
  - OLIGURIA [None]
